FAERS Safety Report 19275401 (Version 1)
Quarter: 2021Q2

REPORT INFORMATION
  Report Type: Spontaneous
  Country: US (occurrence: US)
  Receive Date: 20210519
  Receipt Date: 20210519
  Transmission Date: 20210717
  Serious: No
  Sender: FDA-Public Use
  Company Number: US-ORGANON-O2105USA001264

PATIENT
  Sex: Female

DRUGS (1)
  1. NEXPLANON [Suspect]
     Active Substance: ETONOGESTREL
     Dosage: 1 DOSAGE FORM,68 MILLIGRAM (MG)
     Route: 059

REACTIONS (3)
  - Surgery [Unknown]
  - Complication of device removal [Recovered/Resolved]
  - Device issue [Recovered/Resolved]
